FAERS Safety Report 7501987-0 (Version None)
Quarter: 2011Q2

REPORT INFORMATION
  Report Type: 
  Country: None (occurrence: None)
  Receive Date: 20110523
  Receipt Date: 20110523
  Transmission Date: 20111010
  Serious: No
  Sender: FDA-Public Use
  Company Number: None

PATIENT
  Age: 73 Year
  Sex: Female
  Weight: 45.8133 kg

DRUGS (1)
  1. CARBIDOPA AND LEVODOPA [Suspect]
     Dosage: 100 MG 7 X DAY

REACTIONS (1)
  - DRUG EFFECT DECREASED [None]
